FAERS Safety Report 24784569 (Version 1)
Quarter: 2024Q4

REPORT INFORMATION
  Report Type: Spontaneous
  Country: ES (occurrence: ES)
  Receive Date: 20241227
  Receipt Date: 20241227
  Transmission Date: 20250115
  Serious: Yes (Hospitalization)
  Sender: ELI LILLY AND COMPANY
  Company Number: ES-Merck Healthcare KGaA-2024067431

PATIENT
  Age: 74 Year
  Sex: Male

DRUGS (1)
  1. CETUXIMAB [Suspect]
     Active Substance: CETUXIMAB
     Indication: Oropharyngeal squamous cell carcinoma
     Dosage: UNK, UNKNOWN
     Route: 065

REACTIONS (4)
  - Pneumatosis intestinalis [Recovering/Resolving]
  - Anaemia [Unknown]
  - Pharyngitis [Unknown]
  - Glossitis [Unknown]
